FAERS Safety Report 13928158 (Version 1)
Quarter: 2017Q3

REPORT INFORMATION
  Report Type: Spontaneous
  Country: US (occurrence: None)
  Receive Date: 20170831
  Receipt Date: 20170831
  Transmission Date: 20171127
  Serious: No
  Sender: FDA-Public Use
  Company Number: None

PATIENT
  Age: 35 Year
  Sex: Female

DRUGS (1)
  1. COPAXONE [Suspect]
     Active Substance: GLATIRAMER ACETATE

REACTIONS (5)
  - Injection site pruritus [None]
  - Injection site reaction [None]
  - Injection site erythema [None]
  - Injection site bruising [None]
  - Therapy non-responder [None]

NARRATIVE: CASE EVENT DATE: 20170830
